FAERS Safety Report 9004288 (Version 1)
Quarter: 2013Q1

REPORT INFORMATION
  Report Type: Spontaneous
  Country: GB (occurrence: GB)
  Receive Date: 20130108
  Receipt Date: 20130108
  Transmission Date: 20140127
  Serious: Yes (Death, Other)
  Sender: FDA-Public Use
  Company Number: GB-ROCHE-1177328

PATIENT
  Age: 79 Year
  Sex: Male
  Weight: 65 kg

DRUGS (3)
  1. MABTHERA [Suspect]
     Indication: NON-HODGKIN^S LYMPHOMA
     Route: 042
     Dates: start: 20120725, end: 20120727
  2. ALLOPURINOL [Suspect]
     Indication: PROPHYLAXIS
     Route: 065
     Dates: start: 20120725
  3. ALLOPURINOL [Suspect]
     Indication: TUMOUR LYSIS SYNDROME

REACTIONS (2)
  - Dyspnoea [Fatal]
  - Hypersensitivity [Unknown]
